FAERS Safety Report 25323489 (Version 1)
Quarter: 2025Q2

REPORT INFORMATION
  Report Type: Spontaneous
  Country: US (occurrence: US)
  Receive Date: 20250516
  Receipt Date: 20250516
  Transmission Date: 20250716
  Serious: No
  Sender: ROCHE
  Company Number: US-ROCHE-10000283239

PATIENT
  Sex: Female

DRUGS (2)
  1. XOLAIR [Suspect]
     Active Substance: OMALIZUMAB
     Indication: Hypersensitivity
     Dosage: STRENGTH: 300MG/2ML
     Route: 058
  2. XOLAIR [Suspect]
     Active Substance: OMALIZUMAB

REACTIONS (4)
  - Device defective [Unknown]
  - Manufacturing product shipping issue [Unknown]
  - No adverse event [Unknown]
  - Off label use [Unknown]

NARRATIVE: CASE EVENT DATE: 20250509
